FAERS Safety Report 9377974 (Version 2)
Quarter: 2013Q3

REPORT INFORMATION
  Report Type: Spontaneous
  Country: JP (occurrence: JP)
  Receive Date: 20130701
  Receipt Date: 20130729
  Transmission Date: 20140515
  Serious: Yes (Life-Threatening, Other)
  Sender: FDA-Public Use
  Company Number: JP-ELI_LILLY_AND_COMPANY-JP201306009029

PATIENT
  Age: 84 Year
  Sex: Female
  Weight: 42 kg

DRUGS (8)
  1. CYMBALTA [Suspect]
     Indication: DEPRESSION
     Dosage: 20 MG, QD
     Route: 048
     Dates: start: 20130612, end: 20130619
  2. CYMBALTA [Suspect]
     Indication: ORAL PAIN
  3. CYMBALTA [Suspect]
     Indication: PAIN
  4. RACOL [Concomitant]
     Indication: NUTRITIONAL SUPPLEMENTATION
     Dosage: 200 ML, QD
  5. ARICEPT [Concomitant]
     Indication: DEMENTIA ALZHEIMER^S TYPE
     Dosage: 5 MG, QD
     Route: 048
  6. OMEPRAL                            /00661201/ [Concomitant]
     Indication: GASTROOESOPHAGEAL REFLUX DISEASE
     Dosage: 10 MG, QD
     Route: 048
  7. ALFAROL [Concomitant]
     Indication: OSTEOPOROSIS
     Dosage: 0.5 MG, QD
     Route: 048
  8. DIOVAN [Concomitant]
     Indication: HYPERTENSION
     Dosage: 80 MG, QD
     Route: 048

REACTIONS (3)
  - Loss of consciousness [Recovered/Resolved]
  - Loss of consciousness [Recovered/Resolved]
  - Electrocardiogram QT prolonged [Unknown]
